FAERS Safety Report 10348012 (Version 2)
Quarter: 2014Q3

REPORT INFORMATION
  Report Type: Spontaneous
  Country: US (occurrence: None)
  Receive Date: 20140725
  Receipt Date: 20140818
  Transmission Date: 20150326
  Serious: Yes (Hospitalization, Other)
  Sender: FDA-Public Use
  Company Number: 2014-US-008650

PATIENT
  Age: 14 Year
  Sex: Female

DRUGS (1)
  1. ERWINAZE [Suspect]
     Active Substance: ASPARAGINASE ERWINIA CHRYSANTHEMI
     Dosage: SINGLE
     Dates: start: 20140530, end: 20140530

REACTIONS (4)
  - Hyperammonaemia [None]
  - Hypersensitivity [None]
  - Mental status changes [None]
  - Encephalopathy [None]

NARRATIVE: CASE EVENT DATE: 20140704
